FAERS Safety Report 21518134 (Version 1)
Quarter: 2022Q4

REPORT INFORMATION
  Report Type: Report from Study
  Country: US (occurrence: US)
  Receive Date: 20221028
  Receipt Date: 20221028
  Transmission Date: 20230113
  Serious: No
  Sender: FDA-Public Use
  Company Number: US-AIMMUNE THERAPEUTICS, INC.-2022AIMT02653

PATIENT

DRUGS (3)
  1. ZENPEP [Suspect]
     Active Substance: PANCRELIPASE AMYLASE\PANCRELIPASE LIPASE\PANCRELIPASE PROTEASE
     Indication: Pancreatic failure
     Dosage: 40000 USP UNITS 3 TO 5 TIMES DAILY WITH MEALS
     Route: 048
     Dates: start: 202202
  2. ZENPEP [Suspect]
     Active Substance: PANCRELIPASE AMYLASE\PANCRELIPASE LIPASE\PANCRELIPASE PROTEASE
     Dosage: 40000 USP UNITS 2 TO 3 TIMES A DAY WITH MEALS, DECREASED DOSE
     Route: 048
  3. GABAPENTIN [Concomitant]
     Active Substance: GABAPENTIN
     Indication: Abdominal pain
     Dosage: 2 PILLS X 100 MG, 3X/DAY
     Dates: start: 202207

REACTIONS (3)
  - Eructation [Unknown]
  - Product after taste [Unknown]
  - Vomiting [Unknown]

NARRATIVE: CASE EVENT DATE: 20220401
